FAERS Safety Report 25026601 (Version 1)
Quarter: 2025Q1

REPORT INFORMATION
  Report Type: Spontaneous
  Country: US (occurrence: US)
  Receive Date: 20250301
  Receipt Date: 20250301
  Transmission Date: 20250408
  Serious: No
  Sender: IPSEN BIOPHARMACEUTICALS, INC.
  Company Number: US-IPSEN Group, Research and Development-2025-04802

PATIENT
  Sex: Female

DRUGS (5)
  1. SOMATULINE DEPOT [Suspect]
     Active Substance: LANREOTIDE ACETATE
     Indication: Acromegaly
     Dosage: UNDER THE SKIN SUBCUTANEOUS INJECTION
     Route: 058
     Dates: start: 20210810
  2. IRON [Concomitant]
     Active Substance: IRON
  3. SOMAVERT [Concomitant]
     Active Substance: PEGVISOMANT
  4. SOMAVERT [Concomitant]
     Active Substance: PEGVISOMANT
  5. ZYRTEC ALLGY [Concomitant]

REACTIONS (3)
  - Hypoacusis [Unknown]
  - Carpal tunnel syndrome [Unknown]
  - Sinus congestion [Unknown]
